FAERS Safety Report 5826183-4 (Version None)
Quarter: 2008Q3

REPORT INFORMATION
  Report Type: 
  Country: None (occurrence: None)
  Receive Date: 20080723
  Receipt Date: 20080707
  Transmission Date: 20090109
  Serious: Yes (Death)
  Sender: FDA-Public Use
  Company Number: 2008US001631

PATIENT
  Age: 58 Year
  Sex: Female

DRUGS (6)
  1. PROGRAF [Suspect]
     Indication: RENAL TRANSPLANT
     Dosage: 2 MG, UID/QD, ORAL
     Route: 048
  2. PREDNISONE [Concomitant]
  3. METOPROLOL TARTRATE [Concomitant]
  4. INSULIN (INSULIN) [Concomitant]
  5. LOVASTATIN [Concomitant]
  6. LOSARTAN POTASSIUM [Concomitant]

REACTIONS (2)
  - CARDIO-RESPIRATORY ARREST [None]
  - KIDNEY INFECTION [None]
